FAERS Safety Report 7880477-X (Version None)
Quarter: 2011Q4

REPORT INFORMATION
  Report Type: 
  Country: None (occurrence: None)
  Receive Date: 20111101
  Receipt Date: 20111017
  Transmission Date: 20120403
  Serious: Yes (Other)
  Sender: FDA-Public Use
  Company Number: PHHY2011TW91866

PATIENT
  Age: 8 Year
  Sex: Male

DRUGS (5)
  1. PREDNISOLONE [Concomitant]
     Indication: BONE MARROW TRANSPLANT
     Dosage: 1 MG, QD
  2. MYCOPHENOLATE MOFETIL [Concomitant]
     Indication: BONE MARROW TRANSPLANT
  3. IMATINIB MESYLATE [Concomitant]
  4. CYCLOSPORINE [Suspect]
     Indication: CHRONIC GRAFT VERSUS HOST DISEASE
     Dosage: 4 MG/KG/DAY
  5. METHYLPREDNISOLONE [Concomitant]

REACTIONS (12)
  - CHRONIC GRAFT VERSUS HOST DISEASE [None]
  - NEPHROTIC SYNDROME [None]
  - EYELID OEDEMA [None]
  - PROTEINURIA [None]
  - RASH [None]
  - STOMATITIS [None]
  - OEDEMA PERIPHERAL [None]
  - HYPOALBUMINAEMIA [None]
  - MUCOSAL ULCERATION [None]
  - DRUG RESISTANCE [None]
  - GLOMERULONEPHROPATHY [None]
  - SCROTAL SWELLING [None]
